FAERS Safety Report 6058488-9 (Version None)
Quarter: 2009Q1

REPORT INFORMATION
  Report Type: 
  Country: None (occurrence: None)
  Receive Date: 20090130
  Receipt Date: 20090119
  Transmission Date: 20090719
  Serious: Yes (Hospitalization, Other)
  Sender: FDA-Public Use
  Company Number: PHHY2009DE01967

PATIENT
  Sex: Female

DRUGS (4)
  1. PROVAS [Suspect]
     Dosage: 6 DF, UNK
  2. SIMVASTATIN [Suspect]
     Dosage: 5 DF, UNK
     Route: 048
  3. INEGY [Suspect]
     Dosage: 5 DF, UNK
  4. JANUVIA [Suspect]
     Dosage: 5 DF, UNK
     Route: 048

REACTIONS (3)
  - SUICIDAL IDEATION [None]
  - SUICIDE ATTEMPT [None]
  - TACHYCARDIA [None]
